FAERS Safety Report 7668653-2 (Version None)
Quarter: 2011Q3

REPORT INFORMATION
  Report Type: 
  Country: None (occurrence: None)
  Receive Date: 20110808
  Receipt Date: 20110729
  Transmission Date: 20111222
  Serious: Yes (Hospitalization, Other)
  Sender: FDA-Public Use
  Company Number: US-BAYER-201030318NA

PATIENT
  Age: 26 Year
  Sex: Female
  Weight: 90.703 kg

DRUGS (5)
  1. ZANTAC [Concomitant]
     Dosage: UNK
     Dates: start: 20070501
  2. PRILOSEC [Concomitant]
     Dosage: UNK
     Dates: start: 20070509, end: 20080108
  3. YAZ [Suspect]
     Indication: CONTRACEPTION
     Dosage: UNK UNK, UNK
     Route: 048
     Dates: start: 20070201, end: 20071201
  4. YAZ [Suspect]
     Indication: PREMENSTRUAL SYNDROME
  5. PRILOSEC [Concomitant]
     Dosage: UNK
     Dates: start: 20070501

REACTIONS (6)
  - CHOLELITHIASIS [None]
  - VOMITING [None]
  - ABDOMINAL PAIN [None]
  - NAUSEA [None]
  - CHOLECYSTITIS CHRONIC [None]
  - BILIARY COLIC [None]
